FAERS Safety Report 5239151-0 (Version None)
Quarter: 2007Q1

REPORT INFORMATION
  Report Type: 
  Country: None (occurrence: None)
  Receive Date: 20061208
  Receipt Date: 20050524
  Transmission Date: 20070707
  Serious: Yes (Other)
  Sender: FDA-Public Use
  Company Number: 2005UW08027

PATIENT
  Age: 62 Year
  Sex: Female
  Weight: 86.182 kg

DRUGS (6)
  1. CRESTOR [Suspect]
     Indication: BLOOD CHOLESTEROL INCREASED
     Dosage: 40 MG DAILY  PO
     Route: 048
     Dates: start: 20050101, end: 20050301
  2. XANAX [Concomitant]
  3. BELLAMINE S [Concomitant]
  4. MAXZIDE [Concomitant]
  5. POTASSIUM CHLORIDE [Concomitant]
  6. PREVACID [Concomitant]

REACTIONS (3)
  - HYPOKINESIA [None]
  - PAIN [None]
  - PAIN IN EXTREMITY [None]
